FAERS Safety Report 8236628-0 (Version None)
Quarter: 2012Q1

REPORT INFORMATION
  Report Type: 
  Country: None (occurrence: None)
  Receive Date: 20120326
  Receipt Date: 20120326
  Transmission Date: 20120608
  Serious: No
  Sender: FDA-Public Use
  Company Number: None

PATIENT
  Sex: Male

DRUGS (1)
  1. CYMBALTA [Suspect]
     Indication: PAIN
     Dosage: 30 MG 1 TID ONE TIME

REACTIONS (7)
  - ABASIA [None]
  - VISION BLURRED [None]
  - HYPERHIDROSIS [None]
  - VOMITING [None]
  - DIZZINESS [None]
  - ABDOMINAL DISCOMFORT [None]
  - ILL-DEFINED DISORDER [None]
